FAERS Safety Report 9751369 (Version 1)
Quarter: 2013Q4

REPORT INFORMATION
  Report Type: Spontaneous
  Country: US (occurrence: US)
  Receive Date: 20131212
  Receipt Date: 20131212
  Transmission Date: 20140711
  Serious: No
  Sender: FDA-Public Use
  Company Number: US-BIOGENIDEC-2013BI095540

PATIENT
  Sex: Female

DRUGS (5)
  1. TECFIDERA [Suspect]
     Indication: MULTIPLE SCLEROSIS
     Route: 048
     Dates: start: 201305
  2. BACLOFEN [Concomitant]
  3. FOLIC ACID [Concomitant]
  4. NALTREXONE HCL [Concomitant]
  5. WELLBUTRIN [Concomitant]

REACTIONS (2)
  - Urinary tract infection [Not Recovered/Not Resolved]
  - Amnesia [Unknown]
